FAERS Safety Report 12923459 (Version 1)
Quarter: 2016Q4

REPORT INFORMATION
  Report Type: Spontaneous
  Country: US (occurrence: US)
  Receive Date: 20161109
  Receipt Date: 20161109
  Transmission Date: 20170207
  Serious: No
  Sender: FDA-Public Use
  Company Number: US-009507513-1610USA012960

PATIENT

DRUGS (2)
  1. TEMODAR [Suspect]
     Active Substance: TEMOZOLOMIDE
     Dosage: FIRST CYCLE
  2. TEMODAR [Suspect]
     Active Substance: TEMOZOLOMIDE
     Dosage: SECOND CYCLE

REACTIONS (1)
  - Platelet count decreased [Unknown]
